FAERS Safety Report 5818797-2 (Version None)
Quarter: 2008Q3

REPORT INFORMATION
  Report Type: 
  Country: None (occurrence: None)
  Receive Date: 20080723
  Receipt Date: 20080715
  Transmission Date: 20090109
  Serious: Yes (Other)
  Sender: FDA-Public Use
  Company Number: US-JNJFOC-20080704460

PATIENT
  Age: 14 Year
  Sex: Female

DRUGS (5)
  1. RISPERDAL [Suspect]
     Indication: DRUG USE FOR UNKNOWN INDICATION
     Route: 065
  2. CYMBALTA [Suspect]
     Route: 065
  3. CYMBALTA [Suspect]
     Indication: ANGER
     Route: 065
  4. CYMBALTA [Suspect]
     Indication: AFFECTIVE DISORDER
     Route: 065
  5. BIRTH CONTROL PILL [Concomitant]

REACTIONS (7)
  - AFFECTIVE DISORDER [None]
  - ANGER [None]
  - DRUG DOSE OMISSION [None]
  - DYSPNOEA [None]
  - LETHARGY [None]
  - LOSS OF CONSCIOUSNESS [None]
  - SOMNOLENCE [None]
